FAERS Safety Report 9663270 (Version 3)
Quarter: 2013Q4

REPORT INFORMATION
  Report Type: Spontaneous
  Country: US (occurrence: US)
  Receive Date: 20131101
  Receipt Date: 20131121
  Transmission Date: 20140711
  Serious: Yes (Other)
  Sender: FDA-Public Use
  Company Number: US-BIOGENIDEC-2013BI102817

PATIENT
  Age: 64 Year
  Sex: Female

DRUGS (8)
  1. TYSABRI [Suspect]
     Indication: CROHN^S DISEASE
     Route: 042
     Dates: start: 20130724, end: 20131010
  2. PREDNISONE [Concomitant]
     Indication: CROHN^S DISEASE
  3. NEURONTIN [Concomitant]
  4. SEROQUEL [Concomitant]
  5. GEODON [Concomitant]
  6. PAXIL [Concomitant]
  7. ATIVAN [Concomitant]
  8. LIPITOR [Concomitant]

REACTIONS (2)
  - Liver function test abnormal [Recovered/Resolved]
  - Drug ineffective [Unknown]
